FAERS Safety Report 8803502 (Version 2)
Quarter: 2013Q1

REPORT INFORMATION
  Report Type: Spontaneous
  Country: US (occurrence: US)
  Receive Date: 20120924
  Receipt Date: 20130318
  Transmission Date: 20140127
  Serious: Yes (Life-Threatening, Hospitalization)
  Sender: FDA-Public Use
  Company Number: US-BAYER-2012-098018

PATIENT
  Age: 18 Year
  Sex: Female
  Weight: 77.1 kg

DRUGS (16)
  1. YAZ [Suspect]
     Indication: CONTRACEPTION
     Dosage: UNK
     Dates: start: 200803, end: 20101027
  2. YAZ [Suspect]
     Indication: MENSTRUATION IRREGULAR
  3. YAZ [Suspect]
     Indication: PREMENSTRUAL SYNDROME
  4. YAZ [Suspect]
     Indication: POLYCYSTIC OVARIES
  5. GIANVI [Suspect]
     Dosage: UNK
     Dates: start: 201007, end: 20101009
  6. VITAMINS [Concomitant]
     Indication: SUPPLEMENTATION THERAPY
     Dosage: DAILY
  7. FISH OIL [Concomitant]
     Indication: POLYCYSTIC OVARIES
     Dosage: DAILY
     Dates: start: 2008
  8. METFORMIN [Concomitant]
     Indication: POLYCYSTIC OVARIES
     Dosage: UNK
     Dates: start: 2010
  9. FORTAMET [Concomitant]
     Dosage: 500 MG, UNK
     Dates: start: 20100715
  10. VALACICLOVIR [Concomitant]
     Dosage: 1 G, UNK
     Dates: start: 20100805
  11. DEXAMETHASONE [Concomitant]
     Dosage: 1 MG, UNK
     Dates: start: 20100804
  12. AMOXICILLIN [Concomitant]
     Dosage: 500 MG, UNK
     Dates: start: 20100811
  13. AMOXICILLIN [Concomitant]
     Dosage: 500 MG, UNK
     Dates: start: 20100825
  14. FLUCONAZOLE [Concomitant]
     Dosage: 100 MG, UNK
     Dates: start: 20101011
  15. METRONIDAZOLE [Concomitant]
     Dosage: 375 MG, UNK
     Dates: start: 20101019
  16. METRONIDAZOLE [Concomitant]
     Dosage: 375 MG, UNK
     Dates: start: 20101025

REACTIONS (10)
  - Pulmonary embolism [None]
  - Pulmonary infarction [None]
  - Injury [None]
  - Pleuritic pain [None]
  - Dyspnoea [None]
  - Dizziness [None]
  - Pain [None]
  - Anxiety [None]
  - Fear [None]
  - Pain [None]
